FAERS Safety Report 6135072-X (Version None)
Quarter: 2009Q1

REPORT INFORMATION
  Report Type: 
  Country: None (occurrence: None)
  Receive Date: 20090327
  Receipt Date: 20090318
  Transmission Date: 20090719
  Serious: Yes (Hospitalization)
  Sender: FDA-Public Use
  Company Number: FR-ABBOTT-09P-056-0563236-00

PATIENT
  Sex: Male

DRUGS (7)
  1. DEPAKENE [Suspect]
     Indication: PROPHYLAXIS
     Route: 048
     Dates: start: 20081201, end: 20090102
  2. SEROPLEX TABLET [Suspect]
     Indication: DEPRESSION
     Route: 048
     Dates: start: 20081201, end: 20090102
  3. MUPHORAN [Suspect]
     Indication: METASTATIC MALIGNANT MELANOMA
     Route: 042
     Dates: start: 20081113, end: 20081127
  4. APROVEL [Concomitant]
     Indication: HYPERTENSION
     Route: 048
  5. TAHOR [Concomitant]
     Indication: HYPERCHOLESTEROLAEMIA
     Route: 048
  6. LANZOR [Concomitant]
     Indication: DRUG USE FOR UNKNOWN INDICATION
     Route: 048
  7. FUROSEMIDE [Concomitant]
     Indication: HYPERTENSION
     Route: 048

REACTIONS (4)
  - ANAEMIA [None]
  - LEUKOPENIA [None]
  - PANCYTOPENIA [None]
  - THROMBOCYTOPENIA [None]
